FAERS Safety Report 7337967-8 (Version None)
Quarter: 2011Q1

REPORT INFORMATION
  Report Type: 
  Country: None (occurrence: None)
  Receive Date: 20110308
  Receipt Date: 20110303
  Transmission Date: 20110831
  Serious: Yes (Death)
  Sender: FDA-Public Use
  Company Number: CH-ROCHE-763574

PATIENT
  Sex: Male

DRUGS (2)
  1. ELOXATIN [Concomitant]
     Indication: BILIARY CANCER METASTATIC
  2. XELODA [Suspect]
     Indication: BILIARY CANCER METASTATIC
     Route: 048

REACTIONS (3)
  - HEPATIC FAILURE [None]
  - BILE DUCT CANCER [None]
  - DIARRHOEA [None]
